FAERS Safety Report 18337171 (Version 6)
Quarter: 2021Q2

REPORT INFORMATION
  Report Type: Other
  Country: DE (occurrence: DE)
  Receive Date: 20201001
  Receipt Date: 20210427
  Transmission Date: 20210717
  Serious: Yes (Hospitalization, Other)
  Sender: FDA-Public Use
  Company Number: DE-ROCHE-2573787

PATIENT
  Age: 30 Year
  Sex: Female

DRUGS (6)
  1. OCREVUS [Suspect]
     Active Substance: OCRELIZUMAB
     Route: 042
     Dates: start: 20201013
  2. IBUPROFEN. [Concomitant]
     Active Substance: IBUPROFEN
  3. OCREVUS [Suspect]
     Active Substance: OCRELIZUMAB
     Indication: RELAPSING-REMITTING MULTIPLE SCLEROSIS
     Dosage: NEXT DOSE ON 07/NOV/2019
     Route: 042
     Dates: start: 20191024
  4. OCREVUS [Suspect]
     Active Substance: OCRELIZUMAB
     Route: 042
  5. L?THYROXINE [Concomitant]
     Active Substance: LEVOTHYROXINE
  6. OCREVUS [Suspect]
     Active Substance: OCRELIZUMAB
     Dosage: NEXT DOSE ON 07/NOV/2019
     Route: 042
     Dates: start: 20191107

REACTIONS (12)
  - Vertigo [Recovered/Resolved]
  - Paraesthesia [Recovered/Resolved]
  - Oral herpes [Recovered/Resolved]
  - Pruritus [Recovered/Resolved]
  - Onychalgia [Recovered/Resolved]
  - Osteochondrosis [Not Recovered/Not Resolved]
  - Visual impairment [Recovered/Resolved]
  - Tremor [Recovered/Resolved]
  - Umbilical hernia [Recovered/Resolved]
  - Throat irritation [Recovered/Resolved]
  - Arrhythmia [Recovered/Resolved]
  - Nasopharyngitis [Recovering/Resolving]

NARRATIVE: CASE EVENT DATE: 20191024
